FAERS Safety Report 10187418 (Version 8)
Quarter: 2015Q2

REPORT INFORMATION
  Report Type: Spontaneous
  Country: US (occurrence: None)
  Receive Date: 20140520
  Receipt Date: 20150401
  Transmission Date: 20150821
  Serious: Yes (Hospitalization, Other)
  Sender: FDA-Public Use
  Company Number: ADR-2014-00745

PATIENT
  Age: 40 Year
  Sex: Female

DRUGS (1)
  1. LIORESAL [Suspect]
     Active Substance: BACLOFEN
     Indication: MUSCLE SPASTICITY
     Dosage: 516 MCG/DAY

REACTIONS (24)
  - Amnesia [None]
  - Hallucination [None]
  - Dizziness [None]
  - Musculoskeletal stiffness [None]
  - Memory impairment [None]
  - Muscle twitching [None]
  - Seizure [None]
  - Underdose [None]
  - Prosopagnosia [None]
  - Device power source issue [None]
  - Pruritus [None]
  - Hyperhidrosis [None]
  - Dysstasia [None]
  - Confusional state [None]
  - Muscle tightness [None]
  - Muscle spasticity [None]
  - Device physical property issue [None]
  - Clonus [None]
  - Abasia [None]
  - Urinary incontinence [None]
  - Drug withdrawal syndrome [None]
  - Balance disorder [None]
  - Hypotonia [None]
  - Overdose [None]

NARRATIVE: CASE EVENT DATE: 20140425
